FAERS Safety Report 7596073-8 (Version None)
Quarter: 2011Q3

REPORT INFORMATION
  Report Type: 
  Country: None (occurrence: None)
  Receive Date: 20110707
  Receipt Date: 20110704
  Transmission Date: 20111222
  Serious: Yes (Death, Other)
  Sender: FDA-Public Use
  Company Number: PHHY2011CA55420

PATIENT
  Sex: Female

DRUGS (15)
  1. CLOZAPINE [Concomitant]
     Dosage: 100 MG, BID AT  SUPPER AND HS
     Route: 048
  2. FOSAMAX [Concomitant]
     Dosage: 70 MG/ WEEK
  3. ALBUTEROL [Concomitant]
     Indication: DYSPNOEA
     Dosage: 100 UG, 1-2 INHALATIONS Q4H PRN
  4. CLOZAPINE [Concomitant]
     Dosage: 25 MG, BID T SUPPER AND HS
  5. DIVALPROEX SODIUM [Concomitant]
     Dosage: 250 MG 2 TABS BID
     Route: 048
  6. LIPITOR [Concomitant]
     Dosage: 20 MG, QD
  7. CLOZAPINE [Suspect]
     Indication: SCHIZOPHRENIA
     Dosage: 125 MG, BID
     Route: 048
     Dates: start: 19951002, end: 20110609
  8. DILANTIN [Concomitant]
     Dosage: 100 MG, QD
  9. ARICEPT [Concomitant]
     Dosage: 10 MG, QAM
     Route: 048
  10. FLOVENT [Concomitant]
     Dosage: UNK, 2 INHALATIONS BID
  11. ALTACE [Concomitant]
     Dosage: 5 MG, QD
     Route: 048
  12. NAPROXEN [Concomitant]
     Dosage: 500 MG, BID, 5 DAYS THEN PRN
  13. METFORMIN HCL [Concomitant]
     Dosage: 500 MG, BID
     Route: 048
  14. TYLENOL-500 [Concomitant]
     Dosage: 325 MG, 1-2 TAB, 4-6 H PRN
  15. CELEXA [Concomitant]
     Dosage: 20 MG, QD
     Route: 048

REACTIONS (11)
  - CHEST PAIN [None]
  - COGNITIVE DISORDER [None]
  - SCHIZOPHRENIA [None]
  - DIABETES MELLITUS [None]
  - DYSPNOEA [None]
  - DEATH [None]
  - ARTHRALGIA [None]
  - ABDOMINAL PAIN UPPER [None]
  - OSTEOARTHRITIS [None]
  - OBESITY [None]
  - INCONTINENCE [None]
